FAERS Safety Report 8949082 (Version 1)
Quarter: 2012Q4

REPORT INFORMATION
  Report Type: Report from Study
  Country: DZ (occurrence: DZ)
  Receive Date: 20121206
  Receipt Date: 20121206
  Transmission Date: 20130627
  Serious: Yes (Other)
  Sender: FDA-Public Use
  Company Number: DZ-ROCHE-1164681

PATIENT
  Age: 60 Year

DRUGS (4)
  1. BEVACIZUMAB [Suspect]
     Indication: COLON CANCER
     Route: 065
  2. 5-FLUOROURACIL [Concomitant]
     Indication: COLON CANCER
  3. OXALIPLATIN [Concomitant]
     Indication: COLON CANCER
  4. LEUCOVORIN [Concomitant]
     Indication: COLON CANCER

REACTIONS (7)
  - Pleural effusion [Unknown]
  - Constipation [Unknown]
  - Nausea [Unknown]
  - Vomiting [Unknown]
  - Leukopenia [Unknown]
  - Bone pain [Unknown]
  - Nodule [Unknown]
